FAERS Safety Report 5634672-0 (Version None)
Quarter: 2008Q1

REPORT INFORMATION
  Report Type: 
  Country: None (occurrence: None)
  Receive Date: 20080222
  Receipt Date: 20080218
  Transmission Date: 20080703
  Serious: Yes (Death, Other)
  Sender: FDA-Public Use
  Company Number: FR-ASTRAZENECA-2008CG00268

PATIENT
  Age: 30122 Day
  Sex: Female

DRUGS (12)
  1. CRESTOR [Suspect]
     Route: 048
  2. OMEPRAZOLE [Suspect]
     Route: 048
  3. ROCEPHIN [Suspect]
     Indication: SUPERINFECTION
     Route: 030
     Dates: start: 20071225, end: 20071201
  4. MEDROL [Suspect]
     Indication: BRONCHITIS
     Route: 048
     Dates: start: 20071223, end: 20071228
  5. VENTOLIN [Suspect]
     Indication: SUPERINFECTION
     Dates: end: 20071201
  6. EXOMUC [Suspect]
     Indication: SUPERINFECTION
     Dates: end: 20071201
  7. TRIATEC [Suspect]
     Indication: ISCHAEMIC CARDIOMYOPATHY
     Route: 048
  8. KARDEGIC [Suspect]
     Route: 048
  9. IKOREL [Suspect]
     Indication: CORONARY ARTERY INSUFFICIENCY
     Route: 048
  10. CARDENSIEL [Suspect]
     Indication: ISCHAEMIC CARDIOMYOPATHY
     Route: 048
  11. FUROSEMIDE [Suspect]
     Indication: ISCHAEMIC CARDIOMYOPATHY
     Route: 048
  12. LEVOTHYROX [Suspect]
     Route: 048

REACTIONS (8)
  - BRONCHITIS [None]
  - DERMATITIS BULLOUS [None]
  - DYSPNOEA [None]
  - GENERALISED ERYTHEMA [None]
  - HYPOTHERMIA [None]
  - MULTI-ORGAN FAILURE [None]
  - OEDEMA [None]
  - SPEECH DISORDER [None]
